FAERS Safety Report 24311832 (Version 2)
Quarter: 2024Q4

REPORT INFORMATION
  Report Type: Spontaneous
  Country: US (occurrence: US)
  Receive Date: 20240912
  Receipt Date: 20241104
  Transmission Date: 20250114
  Serious: Yes (Other)
  Sender: PFIZER
  Company Number: US-PFIZER INC-202400251062

PATIENT
  Age: 6 Year
  Sex: Male

DRUGS (3)
  1. BENEFIX [Suspect]
     Active Substance: COAGULATION FACTOR IX RECOMBINANT HUMAN\ISOPROPYL ALCOHOL
     Indication: Haemorrhage
     Dosage: 1188 IU, AS NEEDED, TOTAL DOSE +/-5% FOR MINOR BLEEDING EPISODES
  2. BENEFIX [Suspect]
     Active Substance: COAGULATION FACTOR IX RECOMBINANT HUMAN\ISOPROPYL ALCOHOL
     Dosage: 1188 IU, AS NEEDED, TOTAL DOSE +/-5% FOR MINOR BLEEDING EPISODES
  3. BENEFIX [Suspect]
     Active Substance: COAGULATION FACTOR IX RECOMBINANT HUMAN\ISOPROPYL ALCOHOL
     Dosage: 2376 IU, AS NEEDED, TOTAL DOSE +/-5% FOR MAJOR BLEEDING EPISODES

REACTIONS (1)
  - Injury [Unknown]
